FAERS Safety Report 6021197-6 (Version None)
Quarter: 2008Q4

REPORT INFORMATION
  Report Type: 
  Country: None (occurrence: None)
  Receive Date: 20081222
  Receipt Date: 20080505
  Transmission Date: 20090506
  Serious: Yes (Other)
  Sender: FDA-Public Use
  Company Number: US200805000641

PATIENT
  Sex: Male

DRUGS (3)
  1. HUMALOG [Suspect]
  2. HUMALOG MIX 75/25 [Suspect]
  3. BYETTA [Concomitant]

REACTIONS (7)
  - ANAPHYLACTIC REACTION [None]
  - DRUG HYPERSENSITIVITY [None]
  - DYSPNOEA [None]
  - INJECTION SITE ERYTHEMA [None]
  - INJECTION SITE SWELLING [None]
  - MULTIPLE ALLERGIES [None]
  - WHEEZING [None]
